FAERS Safety Report 6902242-X (Version None)
Quarter: 2010Q3

REPORT INFORMATION
  Report Type: 
  Country: None (occurrence: None)
  Receive Date: 20100803
  Receipt Date: 20080505
  Transmission Date: 20110219
  Serious: No
  Sender: FDA-Public Use
  Company Number: US-PFIZER INC-2008037154

PATIENT
  Age: 49 Year
  Sex: Female
  Weight: 59.1 kg

DRUGS (11)
  1. LYRICA [Suspect]
     Indication: FIBROMYALGIA
     Dates: start: 20080415, end: 20080422
  2. DETROL LA [Concomitant]
     Indication: POLLAKIURIA
  3. BROMFENEX [Concomitant]
  4. TOPIRAMATE [Concomitant]
  5. OMEPRAZOLE [Concomitant]
  6. WELLBUTRIN XL [Concomitant]
  7. MULTI-VITAMINS [Concomitant]
  8. CALCIUM [Concomitant]
  9. GINKGO BILOBA [Concomitant]
  10. LEVOTHYROXINE [Concomitant]
  11. NAPROXEN [Concomitant]

REACTIONS (8)
  - BALANCE DISORDER [None]
  - CHROMATURIA [None]
  - DRY EYE [None]
  - DYSURIA [None]
  - FEELING ABNORMAL [None]
  - MICTURITION URGENCY [None]
  - URINARY TRACT INFECTION [None]
  - URINE OUTPUT DECREASED [None]
